FAERS Safety Report 11991800 (Version 1)
Quarter: 2016Q1

REPORT INFORMATION
  Report Type: Spontaneous
  Country: US (occurrence: US)
  Receive Date: 20160203
  Receipt Date: 20160203
  Transmission Date: 20160526
  Serious: No
  Sender: FDA-Public Use
  Company Number: US-JNJFOC-20151217481

PATIENT
  Sex: Female

DRUGS (1)
  1. INVEGA SUSTENNA [Suspect]
     Active Substance: PALIPERIDONE PALMITATE
     Indication: SCHIZOPHRENIA
     Route: 042

REACTIONS (5)
  - Injection site pain [Unknown]
  - Adverse drug reaction [Unknown]
  - Incorrect route of drug administration [Unknown]
  - Drug dose omission [Unknown]
  - Injection site hypersensitivity [Unknown]
